FAERS Safety Report 7280358-9 (Version None)
Quarter: 2011Q1

REPORT INFORMATION
  Report Type: 
  Country: None (occurrence: None)
  Receive Date: 20110208
  Receipt Date: 20110127
  Transmission Date: 20110831
  Serious: Yes (Hospitalization, Other)
  Sender: FDA-Public Use
  Company Number: US-ELI_LILLY_AND_COMPANY-US201011003703

PATIENT
  Sex: Female

DRUGS (9)
  1. LAMICTAL [Concomitant]
     Indication: CONVULSION
  2. CALCIUM [Concomitant]
  3. FORTEO [Suspect]
     Indication: OSTEOPOROSIS
     Dosage: 20 UG, DAILY (1/D)
     Dates: start: 20080101, end: 20080101
  4. FOLIC ACID [Concomitant]
  5. IRON [Concomitant]
  6. MOTRIN [Concomitant]
     Indication: PAIN
     Dosage: UNK, AS NEEDED
  7. FORTEO [Suspect]
     Dosage: 20 UG, DAILY (1/D)
     Dates: start: 20101201
  8. TYLENOL                                 /SCH/ [Concomitant]
     Indication: PAIN
     Dosage: UNK, AS NEEDED
  9. SYNTHROID [Concomitant]

REACTIONS (4)
  - BACK PAIN [None]
  - KNEE ARTHROPLASTY [None]
  - SPINAL FRACTURE [None]
  - VITAMIN D DECREASED [None]
